FAERS Safety Report 15904323 (Version 1)
Quarter: 2019Q1

REPORT INFORMATION
  Report Type: Spontaneous
  Country: CH (occurrence: CH)
  Receive Date: 20190204
  Receipt Date: 20190204
  Transmission Date: 20190417
  Serious: Yes (Other)
  Sender: FDA-Public Use
  Company Number: CH-TEVA-2019-CH-1005918

PATIENT
  Age: 56 Year
  Sex: Male

DRUGS (10)
  1. IRFEN [Suspect]
     Active Substance: IBUPROFEN
     Dosage: AS NECESSARY
     Route: 048
     Dates: start: 20180509
  2. IRFEN [Suspect]
     Active Substance: IBUPROFEN
     Route: 048
     Dates: start: 20180508, end: 20180509
  3. MOVICOL [Concomitant]
     Active Substance: POLYETHYLENE GLYCOL 3350\POTASSIUM CHLORIDE\SODIUM BICARBONATE\SODIUM CHLORIDE
     Dates: start: 20180504, end: 20180507
  4. NEXIUM [Suspect]
     Active Substance: ESOMEPRAZOLE MAGNESIUM
     Route: 048
     Dates: start: 20180426
  5. DAFALGAN [Suspect]
     Active Substance: ACETAMINOPHEN
     Route: 048
     Dates: start: 20180424, end: 20180504
  6. SEVREDOL [Concomitant]
     Active Substance: MORPHINE
     Dates: start: 20180502, end: 20180507
  7. CLEXANE [Suspect]
     Active Substance: ENOXAPARIN SODIUM
     Route: 058
     Dates: start: 20180504, end: 20180509
  8. IRFEN [Suspect]
     Active Substance: IBUPROFEN
     Route: 048
     Dates: start: 20180502, end: 20180508
  9. TRITTICO [Suspect]
     Active Substance: TRAZODONE HYDROCHLORIDE
     Dates: start: 201802
  10. SEVREDOL [Concomitant]
     Active Substance: MORPHINE
     Dosage: AS NECESSARY
     Dates: start: 20180507

REACTIONS (1)
  - Cholestatic liver injury [Recovering/Resolving]

NARRATIVE: CASE EVENT DATE: 20180509
